FAERS Safety Report 24135738 (Version 2)
Quarter: 2025Q2

REPORT INFORMATION
  Report Type: Spontaneous
  Country: ES (occurrence: ES)
  Receive Date: 20240725
  Receipt Date: 20250508
  Transmission Date: 20250716
  Serious: Yes (Other)
  Sender: NOVARTIS
  Company Number: ES-002147023-NVSC2024ES119411

PATIENT
  Age: 58 Year
  Sex: Male

DRUGS (3)
  1. OFATUMUMAB [Suspect]
     Active Substance: OFATUMUMAB
     Indication: Multiple sclerosis
     Route: 058
     Dates: start: 202405
  2. TAMSULOSIN [Concomitant]
     Active Substance: TAMSULOSIN
     Indication: Product used for unknown indication
     Route: 065
  3. ISONIAZID [Concomitant]
     Active Substance: ISONIAZID
     Indication: Product used for unknown indication
     Route: 065

REACTIONS (11)
  - Dystonia [Recovered/Resolved]
  - Dyspnoea [Recovered/Resolved]
  - Muscle spasms [Recovered/Resolved]
  - Chills [Recovered/Resolved]
  - Pyrexia [Recovered/Resolved]
  - Hyperhidrosis [Recovered/Resolved]
  - Muscle rigidity [Recovered/Resolved]
  - Dysphagia [Recovered/Resolved]
  - Musculoskeletal stiffness [Recovering/Resolving]
  - Myalgia [Recovering/Resolving]
  - Lymphopenia [Recovered/Resolved]

NARRATIVE: CASE EVENT DATE: 20240501
